FAERS Safety Report 4581640-6 (Version None)
Quarter: 2005Q1

REPORT INFORMATION
  Report Type: 
  Country: None (occurrence: None)
  Receive Date: 20050214
  Receipt Date: 20041207
  Transmission Date: 20050727
  Serious: No
  Sender: FDA-Public Use
  Company Number: US-GLAXOSMITHKLINE-A0536589A

PATIENT
  Age: 53 Year
  Sex: Male
  Weight: 77.7 kg

DRUGS (5)
  1. LAMICTAL [Suspect]
     Indication: BIPOLAR DISORDER
     Dosage: 500MG PER DAY
     Route: 048
     Dates: start: 20010101
  2. REMERON [Concomitant]
     Dosage: 45MG AT NIGHT
     Route: 048
     Dates: start: 20001101
  3. PROVIGIL [Concomitant]
     Dosage: 200MG PER DAY
     Route: 048
     Dates: start: 20001201
  4. NEXIUM [Concomitant]
     Dosage: 40MG PER DAY
     Route: 048
     Dates: start: 20010301
  5. CELEBREX [Concomitant]
     Indication: SPINAL COLUMN STENOSIS
     Dosage: 200MG PER DAY
     Route: 048
     Dates: start: 20040601

REACTIONS (1)
  - DIZZINESS [None]
